FAERS Safety Report 10622913 (Version 2)
Quarter: 2014Q4

REPORT INFORMATION
  Report Type: Spontaneous
  Country: US (occurrence: US)
  Receive Date: 20141203
  Receipt Date: 20141212
  Transmission Date: 20150529
  Serious: Yes (Hospitalization, Other)
  Sender: FDA-Public Use
  Company Number: US-GILEAD-2014-0125110

PATIENT
  Age: 58 Year
  Sex: Female

DRUGS (3)
  1. SILDENAFIL. [Concomitant]
     Active Substance: SILDENAFIL
  2. REVATIO [Concomitant]
     Active Substance: SILDENAFIL CITRATE
  3. LETAIRIS [Suspect]
     Active Substance: AMBRISENTAN
     Indication: PRODUCT USED FOR UNKNOWN INDICATION
     Dosage: 5 MG, QD
     Route: 065
     Dates: start: 20131130

REACTIONS (5)
  - Ankle fracture [Unknown]
  - Acute respiratory distress syndrome [Unknown]
  - Fall [Unknown]
  - Cardio-respiratory arrest [Unknown]
  - Unevaluable event [Unknown]

NARRATIVE: CASE EVENT DATE: 20141125
